FAERS Safety Report 4505028-9 (Version None)
Quarter: 2004Q4

REPORT INFORMATION
  Report Type: 
  Country: None (occurrence: None)
  Receive Date: 20041015
  Receipt Date: 20030827
  Transmission Date: 20050328
  Serious: Yes (Other)
  Sender: FDA-Public Use
  Company Number: 2003036398

PATIENT
  Age: 78 Year
  Sex: Female
  Weight: 65.7716 kg

DRUGS (11)
  1. NEURONTIN [Suspect]
     Indication: NEURALGIA
     Dosage: 300 MG (100MG TID) ORAL
     Route: 048
     Dates: start: 20030718
  2. SPIRONOLACTONE [Concomitant]
  3. ALENDRONATE SODIUM [Concomitant]
  4. CALCIUM [Concomitant]
  5. PAROXETINE HYDROCHLORIDE [Concomitant]
  6. MIRTAZAPINE [Concomitant]
  7. TOCOPHEROL CONCENTRATE CAP [Concomitant]
  8. MULTIVITAMIN [Concomitant]
  9. FOLIC ACID [Concomitant]
  10. VICODIN [Concomitant]
  11. CELECOXIB [Concomitant]

REACTIONS (2)
  - CARDIAC FAILURE CONGESTIVE [None]
  - DIFFICULTY IN WALKING [None]
